FAERS Safety Report 8671707 (Version 4)
Quarter: 2015Q1

REPORT INFORMATION
  Report Type: Report from Study
  Country: US (occurrence: US)
  Receive Date: 20120718
  Receipt Date: 20150227
  Transmission Date: 20150721
  Serious: Yes (Death)
  Sender: FDA-Public Use
  Company Number: US-ROCHE-1088844

PATIENT
  Sex: Male

DRUGS (7)
  1. LUCENTIS [Suspect]
     Active Substance: RANIBIZUMAB
     Indication: DIABETIC RETINAL OEDEMA
     Dosage: ON 29/MAR/2010, 26/APR/2010, 24/MAY/2010 AND 07/JUL/2010, 23/AUG/2010, 04/OCT/2010, 15/NOV/2010, 20/
     Route: 050
     Dates: start: 20100222, end: 20110509
  2. CIPROFLOXACIN HCL [Concomitant]
     Active Substance: CIPROFLOXACIN HYDROCHLORIDE
     Dosage: ONE DROP TO THE RIGHT EYE
     Route: 047
     Dates: start: 20100203
  3. COUMADIN [Suspect]
     Active Substance: WARFARIN SODIUM
     Indication: PRODUCT USED FOR UNKNOWN INDICATION
     Route: 065
  4. TROPICAMIDE. [Concomitant]
     Active Substance: TROPICAMIDE
     Route: 065
  5. AVAPRO [Concomitant]
     Active Substance: IRBESARTAN
     Route: 065
     Dates: end: 20101004
  6. LUCENTIS [Suspect]
     Active Substance: RANIBIZUMAB
     Indication: DIABETIC RETINOPATHY
  7. PHENYLEPHRINE [Concomitant]
     Active Substance: PHENYLEPHRINE\PHENYLEPHRINE HYDROCHLORIDE
     Route: 065

REACTIONS (6)
  - Vitreous floaters [Unknown]
  - Blood disorder [Unknown]
  - Visual impairment [Unknown]
  - Death [Fatal]
  - Retinal haemorrhage [Recovered/Resolved]
  - Sensation of foreign body [Unknown]
